FAERS Safety Report 25758458 (Version 1)
Quarter: 2025Q3

REPORT INFORMATION
  Report Type: Report from Study
  Country: US (occurrence: US)
  Receive Date: 20250904
  Receipt Date: 20250904
  Transmission Date: 20251021
  Serious: Yes (Other)
  Sender: AMGEN
  Company Number: US-AMGEN-USASL2025172575

PATIENT
  Age: 53 Year
  Sex: Female

DRUGS (1)
  1. REPATHA [Suspect]
     Active Substance: EVOLOCUMAB
     Indication: Blood cholesterol increased
     Dosage: 140 MILLIGRAM, Q2WK
     Route: 065
     Dates: start: 2025

REACTIONS (4)
  - Vaginal haemorrhage [Unknown]
  - Limb discomfort [Unknown]
  - Myalgia [Unknown]
  - Intentional dose omission [Unknown]

NARRATIVE: CASE EVENT DATE: 20250101
